FAERS Safety Report 6612476-X (Version None)
Quarter: 2010Q1

REPORT INFORMATION
  Report Type: 
  Country: None (occurrence: None)
  Receive Date: 20100303
  Receipt Date: 20100220
  Transmission Date: 20100710
  Serious: Yes (Death, Hospitalization)
  Sender: FDA-Public Use
  Company Number: US-PFIZER INC-2006078285

PATIENT
  Sex: Male
  Weight: 79.5 kg

DRUGS (4)
  1. SUNITINIB MALATE [Suspect]
     Indication: RENAL CELL CARCINOMA
     Dosage: 50 MG, DAILY EVERY 28 DAYS
     Route: 048
     Dates: start: 20060202, end: 20060612
  2. LIPITOR [Concomitant]
     Route: 048
     Dates: start: 20021111
  3. HUMULIN N [Concomitant]
     Route: 058
     Dates: start: 20021111
  4. HUMULIN R [Concomitant]
     Route: 058
     Dates: start: 20021111

REACTIONS (7)
  - BACTERAEMIA [None]
  - COAGULOPATHY [None]
  - DISEASE PROGRESSION [None]
  - HYPOTHYROIDISM [None]
  - MENTAL STATUS CHANGES [None]
  - RENAL CELL CARCINOMA [None]
  - THROMBOCYTOPENIA [None]
